FAERS Safety Report 8882473 (Version 1)
Quarter: 2012Q4

REPORT INFORMATION
  Report Type: 
  Country: US (occurrence: US)
  Receive Date: 20121105
  Receipt Date: 20121105
  Transmission Date: 20130627
  Serious: Yes (Other)
  Sender: FDA-Public Use
  Company Number: CHPA2012US022703

PATIENT
  Age: 43 Year
  Sex: Female

DRUGS (10)
  1. BUCKLEY^S COUGH MIXTURE [Suspect]
     Indication: COUGH
     Dosage: 1 tsp, twice daily
     Route: 048
     Dates: start: 2006
  2. PROPRANOLOL [Concomitant]
     Indication: HEADACHE
  3. TOPAMAX [Concomitant]
     Indication: HEADACHE
  4. DRUG THERAPY NOS [Concomitant]
     Indication: CONTRACEPTION
     Route: 062
  5. POTASSIUM [Concomitant]
  6. ASPIRIN [Concomitant]
     Dosage: 81 mg, Unk
  7. LORATADIN [Concomitant]
     Indication: HYPERSENSITIVITY
  8. LEVOTHYROXINE [Concomitant]
     Indication: HYPOTHYROIDISM
  9. METFORMIN [Concomitant]
     Indication: DIABETES MELLITUS
     Dosage: 500 mg, twice daily
  10. CONCERTA [Concomitant]
     Indication: ATTENTION DEFICIT/HYPERACTIVITY DISORDER
     Dosage: 36 mg, Unk

REACTIONS (2)
  - Fluid retention [Not Recovered/Not Resolved]
  - Bipolar disorder [Not Recovered/Not Resolved]
